FAERS Safety Report 6997944-3 (Version None)
Quarter: 2010Q3

REPORT INFORMATION
  Report Type: 
  Country: None (occurrence: None)
  Receive Date: 20100902
  Receipt Date: 20090728
  Transmission Date: 20110219
  Serious: Yes (Hospitalization)
  Sender: FDA-Public Use
  Company Number: 202141USA

PATIENT
  Age: 66 Year
  Sex: Male

DRUGS (7)
  1. RANITIDINE HYDROCHLORIDE [Suspect]
     Indication: GASTROOESOPHAGEAL REFLUX DISEASE
     Dosage: 600 MG (300 MG, 2 IN 1 D), ORAL
     Route: 048
  2. RANITIDINE HYDROCHLORIDE [Suspect]
     Indication: HIATUS HERNIA
     Dosage: 600 MG (300 MG, 2 IN 1 D), ORAL
     Route: 048
  3. GLATIRAMER ACETATE [Concomitant]
  4. TRANDOLAPRIL [Concomitant]
  5. MORNIFLUMATE [Concomitant]
  6. FLUVASTATIN [Concomitant]
  7. ACETYLSALICYLIC ACID [Concomitant]

REACTIONS (3)
  - ANGIOEDEMA [None]
  - LETHARGY [None]
  - URTICARIA [None]
